FAERS Safety Report 5402823-9 (Version None)
Quarter: 2007Q3

REPORT INFORMATION
  Report Type: 
  Country: None (occurrence: None)
  Receive Date: 20070801
  Receipt Date: 20070726
  Transmission Date: 20080115
  Serious: Yes (Hospitalization)
  Sender: FDA-Public Use
  Company Number: JP-ROCHE-499375

PATIENT
  Age: 77 Year
  Sex: Female

DRUGS (8)
  1. TICLOPIDINE HCL [Suspect]
     Indication: ARTERIOSCLEROSIS OBLITERANS
     Route: 048
     Dates: start: 20000928, end: 20070516
  2. ARTIST [Concomitant]
     Route: 048
     Dates: start: 20070214, end: 20070516
  3. HYDROXYZINE HYDROCHLORIDE [Concomitant]
     Dosage: REPORTED AS ALAMON.
     Route: 048
     Dates: start: 20060213, end: 20070516
  4. DOXAZOSIN MESYLATE [Concomitant]
     Route: 048
     Dates: start: 19970327, end: 20070516
  5. CALBLOCK [Concomitant]
     Route: 048
     Dates: start: 20060412, end: 20070516
  6. OLMESARTAN MEDOXOMIL [Concomitant]
     Route: 048
     Dates: start: 20051222, end: 20070516
  7. ADALAT [Concomitant]
     Route: 048
     Dates: start: 20040304, end: 20070516
  8. ITOROL [Concomitant]
     Route: 048
     Dates: start: 20000706, end: 20070516

REACTIONS (2)
  - IDIOPATHIC THROMBOCYTOPENIC PURPURA [None]
  - THROMBOCYTOPENIA [None]
